FAERS Safety Report 5498891-9 (Version None)
Quarter: 2007Q4

REPORT INFORMATION
  Report Type: 
  Country: None (occurrence: None)
  Receive Date: 20071026
  Receipt Date: 20070813
  Transmission Date: 20080405
  Serious: No
  Sender: FDA-Public Use
  Company Number: A0667680A

PATIENT
  Age: 80 Year
  Sex: Female

DRUGS (3)
  1. ADVAIR DISKUS 100/50 [Suspect]
     Indication: ASTHMA
     Dosage: 1PUFF TWICE PER DAY
     Route: 055
     Dates: start: 20030101
  2. MIRAPEX [Concomitant]
  3. NEURONTIN [Concomitant]

REACTIONS (5)
  - CATECHOLAMINES URINE INCREASED [None]
  - CREATININE URINE DECREASED [None]
  - METANEPHRINE URINE INCREASED [None]
  - URINE ANALYSIS ABNORMAL [None]
  - VANILLYL MANDELIC ACID URINE INCREASED [None]
